FAERS Safety Report 10956786 (Version 1)
Quarter: 2015Q1

REPORT INFORMATION
  Report Type: Spontaneous
  Country: US (occurrence: US)
  Receive Date: 20150326
  Receipt Date: 20150326
  Transmission Date: 20150721
  Serious: No
  Sender: FDA-Public Use
  Company Number: US-MYLANLABS-2014M1010223

PATIENT
  Sex: Female
  Weight: 60.77 kg

DRUGS (6)
  1. EMSAM [Suspect]
     Active Substance: SELEGILINE
     Dosage: 6 MG, QD,
     Route: 062
     Dates: start: 201411
  2. VALERIANA                          /01561601/ [Concomitant]
     Dosage: 470 MG, UNK
  3. REMERON [Concomitant]
     Active Substance: MIRTAZAPINE
     Dosage: UNK
  4. EMSAM [Suspect]
     Active Substance: SELEGILINE
     Indication: DEPRESSION
  5. EMSAM [Suspect]
     Active Substance: SELEGILINE
     Dosage: 6 MG, Q24H
     Route: 062
     Dates: start: 20120826, end: 2014
  6. RESTORIL [Concomitant]
     Active Substance: TEMAZEPAM
     Dosage: UNK

REACTIONS (9)
  - Amnesia [Not Recovered/Not Resolved]
  - Swelling [Not Recovered/Not Resolved]
  - Dizziness [Not Recovered/Not Resolved]
  - Drug effect decreased [Not Recovered/Not Resolved]
  - Abdominal pain upper [Not Recovered/Not Resolved]
  - Chest pain [Not Recovered/Not Resolved]
  - Lacrimation increased [Not Recovered/Not Resolved]
  - Fatigue [Not Recovered/Not Resolved]
  - Unevaluable event [Not Recovered/Not Resolved]

NARRATIVE: CASE EVENT DATE: 2014
